FAERS Safety Report 6153937-X (Version None)
Quarter: 2009Q2

REPORT INFORMATION
  Report Type: 
  Country: None (occurrence: None)
  Receive Date: 20090414
  Receipt Date: 20090403
  Transmission Date: 20091009
  Serious: Yes (Hospitalization, Other)
  Sender: FDA-Public Use
  Company Number: US-BAYER-200837336NA

PATIENT
  Age: 60 Year
  Sex: Female
  Weight: 95 kg

DRUGS (22)
  1. FLUDARA [Suspect]
     Indication: CHRONIC LYMPHOCYTIC LEUKAEMIA
     Dosage: TOTAL DAILY DOSE: 50 MG  UNIT DOSE: 25 MG/M2
     Dates: start: 20061018, end: 20070406
  2. RITUXAN [Concomitant]
     Indication: CHRONIC LYMPHOCYTIC LEUKAEMIA
     Dosage: DAY 1 X 5 CYCLES
  3. LASIX [Concomitant]
     Dosage: TOTAL DAILY DOSE: 40 MG
     Route: 048
  4. ASPIRIN [Concomitant]
     Dosage: TOTAL DAILY DOSE: 81 MG
     Route: 048
  5. COMBIVENT [Concomitant]
     Indication: DYSPNOEA
  6. TRAMADOL HYDROCHLORIDE [Concomitant]
     Dosage: 50 MG, 2 PO BID PRN
     Route: 048
  7. TYLENOL [Concomitant]
  8. FORADIL [Concomitant]
     Route: 055
  9. ALBUTEROL [Concomitant]
     Route: 055
  10. ATIVAN [Concomitant]
     Dosage: BID AS NEEDED
     Route: 048
  11. LIBRIUM [Concomitant]
     Route: 048
  12. DARVOCET-N 100 [Concomitant]
     Dosage: QID PRN
     Route: 048
  13. MULTI-DAY MULTIPLE VITAMINS [Concomitant]
     Route: 048
  14. NIASPAN [Concomitant]
     Dosage: TOTAL DAILY DOSE: 1000 MG
     Route: 048
  15. PREVACID [Concomitant]
     Dosage: TOTAL DAILY DOSE: 30 MG
     Route: 048
  16. DICYCLOMINE HYDROCHLORIDE [Concomitant]
     Dosage: TOTAL DAILY DOSE: 10 MG
     Route: 048
  17. VALTREX [Concomitant]
     Dosage: TOTAL DAILY DOSE: 1000 MG
     Route: 048
  18. MICARDIS [Concomitant]
  19. OMACOR [Concomitant]
  20. TRICOR [Concomitant]
  21. LYRICA [Concomitant]
  22. LIDOCAINE [Concomitant]
     Route: 055

REACTIONS (4)
  - 5Q MINUS SYNDROME [None]
  - ANAEMIA MACROCYTIC [None]
  - MYELODYSPLASTIC SYNDROME TRANSFORMATION [None]
  - THROMBOCYTOPENIA [None]
